FAERS Safety Report 5563590-1 (Version None)
Quarter: 2007Q4

REPORT INFORMATION
  Report Type: 
  Country: None (occurrence: None)
  Receive Date: 20071217
  Receipt Date: 20070713
  Transmission Date: 20080405
  Serious: No
  Sender: FDA-Public Use
  Company Number: US-ASTRAZENECA-2007UW16451

PATIENT
  Age: 73 Year
  Sex: Female
  Weight: 65.3 kg

DRUGS (5)
  1. CRESTOR [Suspect]
     Indication: BLOOD CHOLESTEROL INCREASED
     Route: 048
     Dates: start: 20070701
  2. ORACEA [Concomitant]
  3. FINACEA CREAM [Concomitant]
  4. NORTRIPTYLINE HCL [Concomitant]
  5. NEURONTIN [Concomitant]

REACTIONS (1)
  - PETECHIAE [None]
